FAERS Safety Report 4398762-5 (Version None)
Quarter: 2004Q3

REPORT INFORMATION
  Report Type: 
  Country: None (occurrence: None)
  Receive Date: 20040712
  Receipt Date: 20040618
  Transmission Date: 20050211
  Serious: Yes (Hospitalization, Other)
  Sender: FDA-Public Use
  Company Number: USA040464916

PATIENT
  Age: 70 Year
  Sex: Male
  Weight: 85 kg

DRUGS (12)
  1. CIALIS [Suspect]
     Indication: ERECTILE DYSFUNCTION
     Dosage: 20 MG
  2. FLOMAX MR (TAMSULOSIN HYDROCHLORIDE) [Concomitant]
  3. DIOVAN HCT [Concomitant]
  4. PRAVACHOL [Concomitant]
  5. PRILOSEC [Concomitant]
  6. ASPIRIN [Concomitant]
  7. XANAX [Concomitant]
  8. ZOLOFT [Concomitant]
  9. ZETIA [Concomitant]
  10. ADVAIR DISKUS 100/50 [Concomitant]
  11. TIMOPTIC [Concomitant]
  12. XALATAN [Concomitant]

REACTIONS (8)
  - ALANINE AMINOTRANSFERASE INCREASED [None]
  - ASPARTATE AMINOTRANSFERASE INCREASED [None]
  - BLOOD PRESSURE DECREASED [None]
  - CHILLS [None]
  - DRUG INTERACTION [None]
  - LIVER DISORDER [None]
  - NAUSEA [None]
  - PYREXIA [None]
